FAERS Safety Report 25433865 (Version 1)
Quarter: 2025Q2

REPORT INFORMATION
  Report Type: Spontaneous
  Country: DE (occurrence: DE)
  Receive Date: 20250613
  Receipt Date: 20250613
  Transmission Date: 20250716
  Serious: Yes (Other)
  Sender: MYLAN
  Company Number: DE-SANDOZ-SDZ2025DE037857

PATIENT
  Sex: Male

DRUGS (8)
  1. CANDESARTAN [Suspect]
     Active Substance: CANDESARTAN
     Indication: Hypertension
  2. CANDESARTAN [Suspect]
     Active Substance: CANDESARTAN
     Route: 065
  3. CANDESARTAN [Suspect]
     Active Substance: CANDESARTAN
     Route: 065
  4. CANDESARTAN [Suspect]
     Active Substance: CANDESARTAN
  5. NEVANAC [Concomitant]
     Active Substance: NEPAFENAC
     Indication: Cataract
  6. NEVANAC [Concomitant]
     Active Substance: NEPAFENAC
     Route: 047
  7. NEVANAC [Concomitant]
     Active Substance: NEPAFENAC
     Route: 047
  8. NEVANAC [Concomitant]
     Active Substance: NEPAFENAC

REACTIONS (3)
  - Retinal vein occlusion [Unknown]
  - Blood pressure abnormal [Unknown]
  - Renal function test abnormal [Unknown]

NARRATIVE: CASE EVENT DATE: 20250101
